FAERS Safety Report 5958377-1 (Version None)
Quarter: 2008Q4

REPORT INFORMATION
  Report Type: 
  Country: None (occurrence: None)
  Receive Date: 20081119
  Receipt Date: 20081110
  Transmission Date: 20090506
  Serious: Yes (Hospitalization)
  Sender: FDA-Public Use
  Company Number: DE-ASTRAZENECA-2008PK02450

PATIENT
  Age: 83 Year
  Sex: Female

DRUGS (12)
  1. SEROQUEL [Suspect]
     Dosage: 25-150 MG DAILY
     Route: 048
     Dates: start: 20080811, end: 20080821
  2. SEROQUEL [Suspect]
     Route: 048
     Dates: start: 20080822, end: 20080831
  3. SEROQUEL [Suspect]
     Route: 048
     Dates: start: 20080901, end: 20080903
  4. SEROQUEL [Suspect]
     Route: 048
     Dates: start: 20080904, end: 20080908
  5. SEROQUEL [Suspect]
     Route: 048
     Dates: start: 20080909
  6. ORAP [Suspect]
     Route: 048
     Dates: start: 20080825, end: 20080825
  7. ORAP [Suspect]
     Route: 048
     Dates: start: 20080826, end: 20080901
  8. ORAP [Suspect]
     Route: 048
     Dates: start: 20080902, end: 20080903
  9. ORAP [Suspect]
     Route: 048
     Dates: start: 20080904, end: 20080908
  10. ORAP [Suspect]
     Route: 048
     Dates: start: 20080909, end: 20080911
  11. QUILONUM RETARD [Suspect]
     Route: 048
     Dates: start: 20080101
  12. LORAZEPAM [Concomitant]
     Route: 048
     Dates: start: 20080101

REACTIONS (1)
  - RABBIT SYNDROME [None]
